FAERS Safety Report 7300850-8 (Version None)
Quarter: 2011Q1

REPORT INFORMATION
  Report Type: 
  Country: None (occurrence: None)
  Receive Date: 20110103
  Receipt Date: 20100419
  Transmission Date: 20110831
  Serious: Yes (Life-Threatening, Hospitalization)
  Sender: FDA-Public Use
  Company Number: US-004356

PATIENT
  Age: 57 Year
  Sex: Male

DRUGS (7)
  1. PERCOCET [Concomitant]
  2. MORPHINE SULFATE INJ [Concomitant]
  3. VANCOMYCIN [Concomitant]
  4. LANTUS [Concomitant]
  5. MULTIHANCE [Suspect]
     Indication: NUCLEAR MAGNETIC RESONANCE IMAGING
     Dosage: 15ML ONCE INTRAVENOUS
     Route: 042
     Dates: start: 20100405, end: 20100405
  6. MULTIHANCE [Suspect]
     Indication: OSTEOMYELITIS
     Dosage: 15ML ONCE INTRAVENOUS
     Route: 042
     Dates: start: 20100405, end: 20100405
  7. MULTIHANCE [Suspect]
     Indication: LOCALISED INFECTION
     Dosage: 15ML ONCE INTRAVENOUS
     Route: 042
     Dates: start: 20100405, end: 20100405

REACTIONS (1)
  - HYPOTENSION [None]
